FAERS Safety Report 8919922 (Version 1)
Quarter: 2012Q4

REPORT INFORMATION
  Report Type: 
  Country: US (occurrence: US)
  Receive Date: 20121121
  Receipt Date: 20121121
  Transmission Date: 20130627
  Serious: Yes (Hospitalization)
  Sender: FDA-Public Use
  Company Number: US-NOVOPROD-364280

PATIENT
  Age: 13 Year
  Sex: Female

DRUGS (2)
  1. NORDITROPIN FLEXPRO 10 MG/ML [Suspect]
     Indication: PRODUCT USED FOR UNKNOWN INDICATION
     Dosage: 4.7 mg, qd
     Route: 058
     Dates: start: 20120705, end: 201208
  2. NORDITROPIN FLEXPRO 10 MG/ML [Suspect]
     Dosage: 4.7 mg, qd
     Route: 058
     Dates: start: 201210

REACTIONS (1)
  - Blood creatinine increased [Unknown]
